FAERS Safety Report 5691645-X (Version None)
Quarter: 2008Q2

REPORT INFORMATION
  Report Type: 
  Country: None (occurrence: None)
  Receive Date: 20080402
  Receipt Date: 20080327
  Transmission Date: 20081010
  Serious: Yes (Hospitalization)
  Sender: FDA-Public Use
  Company Number: JP-AMGEN-US231780

PATIENT
  Sex: Female
  Weight: 49 kg

DRUGS (11)
  1. ENBREL [Suspect]
     Indication: RHEUMATOID ARTHRITIS
     Route: 058
     Dates: start: 20060417, end: 20070510
  2. PREDNISOLONE [Suspect]
     Indication: RHEUMATOID ARTHRITIS
     Route: 048
     Dates: start: 20051201
  3. AZATHIOPRINE [Suspect]
     Indication: RHEUMATOID ARTHRITIS
     Route: 048
     Dates: start: 20070416, end: 20070510
  4. RISEDRONATE SODIUM [Concomitant]
     Indication: OSTEOPOROSIS
     Route: 048
  5. TORSEMIDE [Concomitant]
     Indication: OEDEMA
     Route: 048
  6. LOXOPROFEN [Concomitant]
     Indication: RHEUMATOID ARTHRITIS
     Route: 048
  7. BIOFERMIN [Concomitant]
     Dosage: DOSE AND FREQUENCY NOT SPECIFIED
     Route: 048
  8. NOVOLIN R [Concomitant]
     Indication: DIABETES MELLITUS
     Route: 058
     Dates: start: 20061101
  9. ADOFEED [Concomitant]
     Indication: RHEUMATOID ARTHRITIS
     Route: 065
  10. ISCOTIN [Concomitant]
     Dosage: DOSE AND FREQUENCY NOT SPECIFIED
     Route: 048
  11. OMEPRAZOLE [Concomitant]
     Dosage: TABLET DOSE FORM; DOSE AND FREQUENCY NOT SPECIFIED
     Route: 048

REACTIONS (2)
  - AGRANULOCYTOSIS [None]
  - STAPHYLOCOCCAL SEPSIS [None]
